FAERS Safety Report 12724195 (Version 3)
Quarter: 2016Q4

REPORT INFORMATION
  Report Type: Spontaneous
  Country: CA (occurrence: CA)
  Receive Date: 20160908
  Receipt Date: 20161024
  Transmission Date: 20170207
  Serious: Yes (Other)
  Sender: FDA-Public Use
  Company Number: ALCN2016CA006197

PATIENT
  Sex: Female

DRUGS (1)
  1. VITALUX S [Suspect]
     Active Substance: MINERALS\VITAMINS
     Indication: PRODUCT USED FOR UNKNOWN INDICATION
     Route: 065

REACTIONS (3)
  - Choking [Unknown]
  - Dyspnoea [Unknown]
  - Wrong technique in product usage process [Unknown]
